FAERS Safety Report 8824061 (Version 2)
Quarter: 2012Q4

REPORT INFORMATION
  Report Type: Report from Study
  Country: RU (occurrence: RU)
  Receive Date: 20121003
  Receipt Date: 20121029
  Transmission Date: 20130627
  Serious: Yes (Other)
  Sender: FDA-Public Use
  Company Number: RU-UCBSA-067802

PATIENT
  Sex: Female

DRUGS (2)
  1. CIMZIA [Suspect]
     Indication: RHEUMATOID ARTHRITIS
     Route: 058
     Dates: start: 2006, end: 20120131
  2. METHOTREXATE [Concomitant]
     Dates: start: 201001

REACTIONS (1)
  - Pulmonary tuberculosis [Not Recovered/Not Resolved]
